FAERS Safety Report 6516551-X (Version None)
Quarter: 2009Q4

REPORT INFORMATION
  Report Type: 
  Country: None (occurrence: None)
  Receive Date: 20091223
  Receipt Date: 20091214
  Transmission Date: 20100525
  Serious: Yes (Other)
  Sender: FDA-Public Use
  Company Number: US-JNJFOC-20091204876

PATIENT
  Sex: Female

DRUGS (5)
  1. RISPERDAL [Suspect]
     Indication: DEPRESSION
     Route: 048
  2. RISPERDAL [Suspect]
     Route: 048
  3. RISPERDAL [Suspect]
     Route: 048
  4. RISPERDAL CONSTA [Suspect]
     Indication: DEPRESSION
     Route: 030
  5. RISPERIDONE [Suspect]
     Indication: DEPRESSION
     Route: 048

REACTIONS (15)
  - ABDOMINAL PAIN LOWER [None]
  - BACK PAIN [None]
  - CONSTIPATION [None]
  - DIARRHOEA [None]
  - DYSPEPSIA [None]
  - FAECAL INCONTINENCE [None]
  - HYPOAESTHESIA [None]
  - IRRITABLE BOWEL SYNDROME [None]
  - NAUSEA [None]
  - PELVIC PAIN [None]
  - PRURITUS [None]
  - RENAL CYST [None]
  - SENSORY DISTURBANCE [None]
  - SENSORY LOSS [None]
  - TRANSIENT ISCHAEMIC ATTACK [None]
